FAERS Safety Report 24197607 (Version 1)
Quarter: 2024Q3

REPORT INFORMATION
  Report Type: Spontaneous
  Country: JP (occurrence: JP)
  Receive Date: 20240811
  Receipt Date: 20240811
  Transmission Date: 20241016
  Serious: Yes (Other)
  Sender: AMGEN
  Company Number: JP-KYOWAKIRIN-2024KK018324

PATIENT
  Age: 29 Year
  Sex: Female

DRUGS (2)
  1. PEGFILGRASTIM [Suspect]
     Active Substance: PEGFILGRASTIM
     Indication: Febrile neutropenia
     Dosage: UNK
     Route: 065
  2. MEROPENEM [Concomitant]
     Active Substance: MEROPENEM
     Indication: Febrile neutropenia
     Dosage: UNK
     Route: 065

REACTIONS (5)
  - Tracheitis obstructive [Recovered/Resolved]
  - Chronic papillomatous dermatitis [Recovered/Resolved]
  - Adverse reaction [Unknown]
  - Off label use [Unknown]
  - Therapeutic procedure [Unknown]
